FAERS Safety Report 25401237 (Version 1)
Quarter: 2025Q2

REPORT INFORMATION
  Report Type: Spontaneous
  Country: US (occurrence: None)
  Receive Date: 20250604
  Receipt Date: 20250604
  Transmission Date: 20250716
  Serious: Yes (Other)
  Sender: FDA-CTU
  Company Number: None

PATIENT
  Age: 46 Year
  Sex: Female
  Weight: 98.1 kg

DRUGS (1)
  1. CETIRIZINE [Suspect]
     Active Substance: CETIRIZINE HYDROCHLORIDE
     Indication: Urticaria
     Dosage: FREQUENCY : DAILY;?
     Route: 048
     Dates: start: 20250110, end: 20250602

REACTIONS (5)
  - Urticaria [None]
  - Urticaria [None]
  - Disease recurrence [None]
  - Therapy interrupted [None]
  - Sleep disorder [None]

NARRATIVE: CASE EVENT DATE: 20250604
